FAERS Safety Report 24625846 (Version 1)
Quarter: 2024Q4

REPORT INFORMATION
  Report Type: Spontaneous
  Country: US (occurrence: US)
  Receive Date: 20241115
  Receipt Date: 20241115
  Transmission Date: 20250115
  Serious: No
  Sender: ANI
  Company Number: US-ANIPHARMA-2024-US-051086

PATIENT
  Sex: Male

DRUGS (16)
  1. CORTICOTROPIN [Suspect]
     Active Substance: CORTICOTROPIN
     Indication: Rheumatoid arthritis
  2. CALCIUM HIGH POTENCY + VI [Concomitant]
  3. HYDROXYCHLOROQUINE SULFATE [Concomitant]
     Active Substance: HYDROXYCHLOROQUINE SULFATE
  4. JANUVIA [Concomitant]
     Active Substance: SITAGLIPTIN PHOSPHATE
  5. LANTUS SOLOSTAR [Concomitant]
     Active Substance: INSULIN GLARGINE
  6. LOSARTAN POTASSIUM [Concomitant]
     Active Substance: LOSARTAN POTASSIUM
  7. MULTIVITAMIN ADULTS [Concomitant]
  8. HUMALOG KWIKPEN [Concomitant]
     Active Substance: INSULIN LISPRO
  9. PREDNISONE [Concomitant]
     Active Substance: PREDNISONE
  10. RINVOQ [Concomitant]
     Active Substance: UPADACITINIB
  11. D2000 ULTRA STRENGTH [Concomitant]
  12. ALLOPURINOL [Concomitant]
     Active Substance: ALLOPURINOL
  13. ATENOLOL [Concomitant]
     Active Substance: ATENOLOL
  14. SM NATURAL [Concomitant]
  15. FISH OIL\OMEGA-3 FATTY ACIDS [Concomitant]
     Active Substance: FISH OIL\OMEGA-3 FATTY ACIDS
  16. ATORVASTATIN CALCIUM [Concomitant]
     Active Substance: ATORVASTATIN CALCIUM

REACTIONS (2)
  - Injection site bruising [Unknown]
  - Drug ineffective [Unknown]
